FAERS Safety Report 9735219 (Version 1)
Quarter: 2013Q4

REPORT INFORMATION
  Report Type: Spontaneous
  Country: US (occurrence: None)
  Receive Date: 20131205
  Receipt Date: 20131205
  Transmission Date: 20140711
  Serious: No
  Sender: FDA-Public Use
  Company Number: None

PATIENT
  Age: 57 Year
  Sex: Female
  Weight: 57.61 kg

DRUGS (2)
  1. CRESTOR 10 MG ASTRAZENECA [Suspect]
     Indication: BLOOD CHOLESTEROL INCREASED
     Dosage: 1 TABLET DAILY, ONCE DAILY, TAKEN BY MOUTH
     Route: 048
     Dates: start: 20131001, end: 20131114
  2. CRESTOR 10 MG ASTRAZENECA [Suspect]
     Indication: LOW DENSITY LIPOPROTEIN INCREASED
     Dosage: 1 TABLET DAILY, ONCE DAILY, TAKEN BY MOUTH
     Route: 048
     Dates: start: 20131001, end: 20131114

REACTIONS (6)
  - Musculoskeletal pain [None]
  - Pain in extremity [None]
  - Muscular weakness [None]
  - Dyspnoea exertional [None]
  - Heart rate irregular [None]
  - Heart rate increased [None]
